FAERS Safety Report 6656070-3 (Version None)
Quarter: 2010Q1

REPORT INFORMATION
  Report Type: 
  Country: None (occurrence: None)
  Receive Date: 20100329
  Receipt Date: 20100319
  Transmission Date: 20100710
  Serious: Yes (Hospitalization)
  Sender: FDA-Public Use
  Company Number: A0852058A

PATIENT
  Age: 45 Year
  Sex: Female

DRUGS (3)
  1. MELPHALAN HYDROCHLORIDE [Suspect]
     Indication: DRUG USE FOR UNKNOWN INDICATION
     Route: 065
  2. VELCADE [Suspect]
     Indication: MULTIPLE MYELOMA
     Dosage: 1.3MGM2 CYCLIC
     Dates: start: 20100216, end: 20100223
  3. DEXAMETHASONE [Suspect]
     Indication: MULTIPLE MYELOMA
     Route: 065
     Dates: start: 20100216

REACTIONS (6)
  - FEELING HOT [None]
  - HAEMOPHILUS INFECTION [None]
  - INFECTION [None]
  - NASAL CONGESTION [None]
  - PRODUCTIVE COUGH [None]
  - TACHYCARDIA [None]
